FAERS Safety Report 15904873 (Version 5)
Quarter: 2019Q1

REPORT INFORMATION
  Report Type: Report from Study
  Country: US (occurrence: US)
  Receive Date: 20190204
  Receipt Date: 20190327
  Transmission Date: 20190417
  Serious: Yes (Other)
  Sender: FDA-Public Use
  Company Number: US-SA-2019SA028438

PATIENT
  Age: 54 Year
  Sex: Female

DRUGS (1)
  1. ALEMTUZUMAB [Suspect]
     Active Substance: ALEMTUZUMAB
     Indication: MULTIPLE SCLEROSIS
     Dosage: 12 MG, QD
     Route: 041
     Dates: start: 20190121, end: 20190125

REACTIONS (13)
  - Cardiac flutter [Unknown]
  - Back pain [Not Recovered/Not Resolved]
  - Cold sweat [Unknown]
  - White blood cell count abnormal [Not Recovered/Not Resolved]
  - Full blood count decreased [Unknown]
  - Fatigue [Not Recovered/Not Resolved]
  - Asthenia [Unknown]
  - Neck pain [Recovered/Resolved]
  - Blood count abnormal [Unknown]
  - Pruritus [Not Recovered/Not Resolved]
  - Asthenia [Recovered/Resolved]
  - Dysarthria [Unknown]
  - Memory impairment [Unknown]

NARRATIVE: CASE EVENT DATE: 20190121
